APPROVED DRUG PRODUCT: TERBUTALINE SULFATE
Active Ingredient: TERBUTALINE SULFATE
Strength: 1MG/ML
Dosage Form/Route: INJECTABLE;INJECTION
Application: A078151 | Product #001
Applicant: EPIC PHARMA LLC
Approved: Jan 7, 2008 | RLD: No | RS: No | Type: DISCN